FAERS Safety Report 9095062 (Version 1)
Quarter: 2013Q1

REPORT INFORMATION
  Report Type: Spontaneous
  Country: US (occurrence: None)
  Receive Date: 20130214
  Receipt Date: 20130214
  Transmission Date: 20140127
  Serious: No
  Sender: FDA-Public Use
  Company Number: None

PATIENT
  Age: 67 Year
  Sex: Male
  Weight: 58.97 kg

DRUGS (1)
  1. METOCLOPRAMIDE 10 MG GENERIC FOR REGLAN [Suspect]
     Indication: DYSPEPSIA
     Dosage: 30 MIN BEFORE MEALS   .. TO CONTINUE
     Route: 048
     Dates: start: 20121210, end: 20121215

REACTIONS (4)
  - Agitation [None]
  - Restlessness [None]
  - Lip swelling [None]
  - Swelling face [None]
